FAERS Safety Report 24748406 (Version 1)
Quarter: 2024Q4

REPORT INFORMATION
  Report Type: Spontaneous
  Country: US (occurrence: US)
  Receive Date: 20241218
  Receipt Date: 20241218
  Transmission Date: 20250114
  Serious: Yes (Other)
  Sender: HIKMA
  Company Number: US-MLMSERVICE-20241127-PI273010-00271-1

PATIENT

DRUGS (4)
  1. METHYLPREDNISOLONE [Suspect]
     Active Substance: METHYLPREDNISOLONE
     Indication: Optic perineuritis
     Dosage: 1 GRAM
     Route: 042
  2. METHYLPREDNISOLONE [Suspect]
     Active Substance: METHYLPREDNISOLONE
     Indication: Evidence based treatment
  3. PREDNISONE [Suspect]
     Active Substance: PREDNISONE
     Indication: Optic perineuritis
     Dosage: UNKNOWN, TAPER
     Route: 048
  4. PREDNISONE [Suspect]
     Active Substance: PREDNISONE
     Indication: Evidence based treatment

REACTIONS (4)
  - Rhinocerebral mucormycosis [Recovered/Resolved]
  - Aspergillus infection [Recovered/Resolved]
  - Optic perineuritis [Recovered/Resolved]
  - Condition aggravated [Recovered/Resolved]
